FAERS Safety Report 15705245 (Version 3)
Quarter: 2022Q2

REPORT INFORMATION
  Report Type: Report from Study
  Country: FR (occurrence: FR)
  Receive Date: 20181210
  Receipt Date: 20220525
  Transmission Date: 20220721
  Serious: Yes (Death, Hospitalization, Other)
  Sender: FDA-Public Use
  Company Number: FR-BRISTOL-MYERS SQUIBB COMPANY-BMS-2018-113676

PATIENT
  Age: 65 Year
  Sex: Male
  Weight: 59 kg

DRUGS (2)
  1. NIVOLUMAB [Suspect]
     Active Substance: NIVOLUMAB
     Indication: Renal cancer
     Dosage: 180 MG EVERY 15 DAYS
     Route: 065
     Dates: start: 20180309, end: 20180309
  2. LEVOTHYROXINE [Concomitant]
     Active Substance: LEVOTHYROXINE
     Indication: Product used for unknown indication
     Dosage: 100 ?G, UNK
     Route: 065

REACTIONS (13)
  - Endocrine disorder [Recovered/Resolved with Sequelae]
  - Hypothyroidism [Unknown]
  - Asthenia [Unknown]
  - Confusional state [Unknown]
  - Hypotension [Unknown]
  - Rash [Unknown]
  - Pyrexia [Unknown]
  - General physical health deterioration [Unknown]
  - Somnolence [Unknown]
  - Malnutrition [Unknown]
  - Pain [Unknown]
  - Anxiety [Unknown]
  - Death [Fatal]

NARRATIVE: CASE EVENT DATE: 20180316
